FAERS Safety Report 7555862-6 (Version None)
Quarter: 2011Q2

REPORT INFORMATION
  Report Type: 
  Country: None (occurrence: None)
  Receive Date: 20110618
  Receipt Date: 20110120
  Transmission Date: 20111010
  Serious: Yes (Hospitalization, Other)
  Sender: FDA-Public Use
  Company Number: US-BAYER-201027101NA

PATIENT
  Age: 35 Year
  Sex: Female
  Weight: 68.481 kg

DRUGS (2)
  1. YAZ [Suspect]
  2. YAZ [Suspect]
     Indication: PREMENSTRUAL SYNDROME
     Dosage: UNK UNK, QD
     Route: 048
     Dates: start: 20080801, end: 20090901

REACTIONS (10)
  - VOMITING [None]
  - ABDOMINAL PAIN UPPER [None]
  - FLANK PAIN [None]
  - PROCEDURAL PAIN [None]
  - PROCEDURAL VOMITING [None]
  - ABDOMINAL DISCOMFORT [None]
  - NAUSEA [None]
  - GALLBLADDER INJURY [None]
  - CHOLECYSTITIS CHRONIC [None]
  - CHOLELITHIASIS [None]
